FAERS Safety Report 6531423-2 (Version None)
Quarter: 2010Q1

REPORT INFORMATION
  Report Type: 
  Country: None (occurrence: None)
  Receive Date: 20100108
  Receipt Date: 20091123
  Transmission Date: 20100710
  Serious: No
  Sender: FDA-Public Use
  Company Number: A0823511A

PATIENT
  Age: 56 Year
  Sex: Female

DRUGS (6)
  1. TYKERB [Suspect]
     Indication: BREAST CANCER
     Dosage: 4TAB PER DAY
     Route: 048
     Dates: start: 20091116
  2. IBUPROFEN [Concomitant]
  3. EFFEXOR [Concomitant]
  4. FLEXERIL [Concomitant]
  5. TRAZODONE HCL [Concomitant]
  6. LASIX [Concomitant]

REACTIONS (2)
  - DIARRHOEA [None]
  - VOMITING [None]
